FAERS Safety Report 8524699-3 (Version None)
Quarter: 2012Q3

REPORT INFORMATION
  Report Type: 
  Country: None (occurrence: None)
  Receive Date: 20120720
  Receipt Date: 20120711
  Transmission Date: 20120928
  Serious: Yes (Disabling)
  Sender: FDA-Public Use
  Company Number: DE-ROCHE-1074631

PATIENT
  Sex: Female
  Weight: 72 kg

DRUGS (5)
  1. PREDNISONE TAB [Concomitant]
     Indication: POLYARTHRITIS
     Route: 048
  2. BONIVA [Suspect]
     Indication: OSTEOPOROSIS
     Route: 042
     Dates: start: 20080101
  3. BONIVA [Suspect]
     Dosage: FIFTEENTH INJECTION
     Route: 042
     Dates: start: 20120427
  4. LANSOPRAZOLE [Concomitant]
     Indication: GASTROOESOPHAGEAL REFLUX DISEASE
     Route: 048
  5. VOLTAREN [Concomitant]
     Indication: ARTHRALGIA
     Route: 048

REACTIONS (1)
  - PHLEBOSCLEROSIS [None]
